FAERS Safety Report 6854775-2 (Version None)
Quarter: 2010Q3

REPORT INFORMATION
  Report Type: 
  Country: None (occurrence: None)
  Receive Date: 20100717
  Receipt Date: 20080110
  Transmission Date: 20110219
  Serious: No
  Sender: FDA-Public Use
  Company Number: US-PFIZER INC-2008004551

PATIENT
  Sex: Male
  Weight: 97.727 kg

DRUGS (4)
  1. CHANTIX [Suspect]
     Indication: SMOKING CESSATION THERAPY
     Dates: start: 20071201
  2. CORTICOSTEROID NOS [Suspect]
     Indication: PNEUMONIA
     Dates: start: 20071201, end: 20080106
  3. VITAMINS [Concomitant]
  4. VERAPAMIL [Concomitant]

REACTIONS (3)
  - ABDOMINAL PAIN UPPER [None]
  - INSOMNIA [None]
  - NAUSEA [None]
